FAERS Safety Report 16135832 (Version 1)
Quarter: 2019Q1

REPORT INFORMATION
  Report Type: Spontaneous
  Country: DE (occurrence: DE)
  Receive Date: 20190329
  Receipt Date: 20190329
  Transmission Date: 20190418
  Serious: Yes (Disabling)
  Sender: FDA-Public Use
  Company Number: DE-MYLANLABS-2019M1028211

PATIENT
  Age: 67 Year
  Sex: Male

DRUGS (1)
  1. TAMSULOSIN [Suspect]
     Active Substance: TAMSULOSIN
     Indication: LOWER URINARY TRACT SYMPTOMS
     Dosage: 0.4 MG, DAILY (PROLONGED-RELEASE CAPSULE)
     Route: 048

REACTIONS (3)
  - Product physical issue [Unknown]
  - Urinary tract infection [Recovering/Resolving]
  - Drug ineffective [Recovering/Resolving]
